FAERS Safety Report 6642656-9 (Version None)
Quarter: 2010Q1

REPORT INFORMATION
  Report Type: 
  Country: None (occurrence: None)
  Receive Date: 20100316
  Receipt Date: 20091015
  Transmission Date: 20100710
  Serious: Yes (Other)
  Sender: FDA-Public Use
  Company Number: ZA-GDP-09406874

PATIENT
  Sex: Male
  Weight: 61 kg

DRUGS (3)
  1. TETRACYCLINE [Suspect]
     Indication: ACNE
     Dosage: (300 MG QD ORAL)
     Route: 048
     Dates: start: 20090724, end: 20091007
  2. DIFFERIN [Suspect]
     Indication: ACNE
     Dosage: (TOPICAL)
     Route: 061
     Dates: start: 20090724, end: 20091007
  3. IONAX SCRUB (BENZALKONIUM CHLORIDE; MACROGOL) [Suspect]
     Indication: ACNE
     Route: 061
     Dates: start: 20090724, end: 20091007

REACTIONS (2)
  - ACNE PUSTULAR [None]
  - CYST [None]
